FAERS Safety Report 21714321 (Version 10)
Quarter: 2023Q4

REPORT INFORMATION
  Report Type: Report from Study
  Country: US (occurrence: US)
  Receive Date: 20221212
  Receipt Date: 20231221
  Transmission Date: 20240109
  Serious: Yes (Hospitalization, Other)
  Sender: FDA-Public Use
  Company Number: US-TAKEDA-US201925323

PATIENT
  Age: 77 Year
  Sex: Female

DRUGS (3)
  1. HUMAN IMMUNOGLOBULIN G [Suspect]
     Active Substance: HUMAN IMMUNOGLOBULIN G
     Indication: Immunodeficiency common variable
     Dosage: UNK
     Route: 058
  2. HUMAN IMMUNOGLOBULIN G [Suspect]
     Active Substance: HUMAN IMMUNOGLOBULIN G
     Indication: Primary immunodeficiency syndrome
  3. PROLIA [Concomitant]
     Active Substance: DENOSUMAB
     Dosage: UNK
     Route: 065

REACTIONS (31)
  - Rib fracture [Not Recovered/Not Resolved]
  - Clavicle fracture [Not Recovered/Not Resolved]
  - Pelvic fracture [Not Recovered/Not Resolved]
  - Fall [Unknown]
  - Gait disturbance [Not Recovered/Not Resolved]
  - Cervical vertebral fracture [Not Recovered/Not Resolved]
  - Pain [Unknown]
  - Breast pain [Unknown]
  - Intervertebral disc protrusion [Unknown]
  - Limb injury [Unknown]
  - Blood pressure abnormal [Unknown]
  - Musculoskeletal discomfort [Unknown]
  - Tooth disorder [Unknown]
  - Gingival disorder [Unknown]
  - Ligament sprain [Recovering/Resolving]
  - Restless legs syndrome [Unknown]
  - Fluid retention [Unknown]
  - Weight fluctuation [Unknown]
  - Nasopharyngitis [Unknown]
  - Arthralgia [Unknown]
  - Contusion [Unknown]
  - Infusion site pain [Unknown]
  - Fatigue [Unknown]
  - Chest pain [Unknown]
  - Migraine [Unknown]
  - Muscle spasms [Unknown]
  - Infusion site mass [Unknown]
  - Cough [Unknown]
  - Inappropriate schedule of product administration [Unknown]
  - Product dose omission issue [Unknown]
  - Product distribution issue [Unknown]

NARRATIVE: CASE EVENT DATE: 20190728
